FAERS Safety Report 21662625 (Version 3)
Quarter: 2023Q1

REPORT INFORMATION
  Report Type: Report from Study
  Country: US (occurrence: US)
  Receive Date: 20221130
  Receipt Date: 20230323
  Transmission Date: 20230418
  Serious: No
  Sender: FDA-Public Use
  Company Number: US-ABBVIE-4214079

PATIENT
  Age: 7 Year
  Sex: Female

DRUGS (4)
  1. LUPRON DEPOT [Suspect]
     Active Substance: LEUPROLIDE ACETATE
     Indication: Hyperpituitarism
     Dosage: 30MG/3MO
     Route: 030
     Dates: start: 20221117
  2. Zyrtech [Concomitant]
     Indication: Hypersensitivity
     Dosage: FREQUENCY TEXT: DAILY
     Route: 048
     Dates: start: 201903
  3. VITAFUSION MULTIVITES [Concomitant]
     Indication: Supplementation therapy
     Dosage: FREQUENCY TEXT: DAILY
     Route: 048
     Dates: start: 201612
  4. Claritin. [Concomitant]
     Indication: Product used for unknown indication
     Dates: start: 20210923

REACTIONS (2)
  - Headache [Recovered/Resolved]
  - Hot flush [Recovered/Resolved]

NARRATIVE: CASE EVENT DATE: 20221120
